FAERS Safety Report 8870083 (Version 1)
Quarter: 2012Q4

REPORT INFORMATION
  Report Type: 
  Country: US (occurrence: US)
  Receive Date: 20121028
  Receipt Date: 20121028
  Transmission Date: 20130627
  Serious: No
  Sender: FDA-Public Use
  Company Number: US-009507513-1210USA006226

PATIENT

DRUGS (3)
  1. JANUMET XR [Suspect]
     Indication: TYPE 2 DIABETES MELLITUS
     Dosage: Strength : 50/1000 dose : 50/1000 mg
  2. JANUVIA [Suspect]
     Indication: TYPE 2 DIABETES MELLITUS
  3. METFORMIN [Suspect]
     Indication: TYPE 2 DIABETES MELLITUS

REACTIONS (1)
  - Diarrhoea [Unknown]
